FAERS Safety Report 5717901-4 (Version None)
Quarter: 2008Q2

REPORT INFORMATION
  Report Type: 
  Country: None (occurrence: None)
  Receive Date: 20080425
  Receipt Date: 20080307
  Transmission Date: 20081010
  Serious: No
  Sender: FDA-Public Use
  Company Number: US-ABBOTT-08P-163-0441627-00

PATIENT
  Sex: Female
  Weight: 56.75 kg

DRUGS (1)
  1. ERYTHROMYCIN [Suspect]
     Indication: BRONCHITIS
     Route: 048
     Dates: start: 19980101, end: 19980101

REACTIONS (1)
  - RASH [None]
